FAERS Safety Report 9894680 (Version 1)
Quarter: 2014Q1

REPORT INFORMATION
  Report Type: Spontaneous
  Country: KR (occurrence: KR)
  Receive Date: 20140213
  Receipt Date: 20140213
  Transmission Date: 20141002
  Serious: Yes (Other)
  Sender: FDA-Public Use
  Company Number: PHHY2014KR016971

PATIENT
  Age: 46 Year
  Sex: Female

DRUGS (3)
  1. 5-FLUOROURACIL [Suspect]
     Indication: CHEMOTHERAPY
     Dosage: 1000 MG/M2, PER DAY
  2. CISPLATIN [Suspect]
     Indication: CHEMOTHERAPY
     Dosage: 100 MG/M2, UNK
  3. CISPLATIN [Suspect]
     Dosage: 75 UNK, UNK

REACTIONS (12)
  - Subdural haematoma [Recovered/Resolved]
  - Wernicke^s encephalopathy [Recovered/Resolved]
  - Dizziness [Recovered/Resolved]
  - Nystagmus [Recovered/Resolved]
  - Disorientation [Recovered/Resolved]
  - Headache [Recovered/Resolved]
  - Lethargy [Recovered/Resolved]
  - Confusional state [Recovered/Resolved]
  - Neutropenia [Recovered/Resolved]
  - Haemoglobin decreased [Unknown]
  - Platelet count decreased [Unknown]
  - Stomatitis [Recovered/Resolved]
